FAERS Safety Report 19931991 (Version 1)
Quarter: 2021Q4

REPORT INFORMATION
  Report Type: Spontaneous
  Country: CN (occurrence: CN)
  Receive Date: 20211007
  Receipt Date: 20211007
  Transmission Date: 20220303
  Serious: Yes (Disabling)
  Sender: FDA-Public Use
  Company Number: CN-BAXTER-2021BAX024535

PATIENT
  Age: 63 Year
  Sex: Male
  Weight: 82 kg

DRUGS (25)
  1. CYCLOPHOSPHAMIDE [Suspect]
     Active Substance: CYCLOPHOSPHAMIDE
     Indication: Non-Hodgkin^s lymphoma
     Dosage: DAY 5; CYCLOPHOSPHAMIDE 1.2 G + NS 500 ML
     Route: 041
     Dates: start: 20200904, end: 20200904
  2. CYCLOPHOSPHAMIDE [Suspect]
     Active Substance: CYCLOPHOSPHAMIDE
     Dosage: DOSE RE-INTRODUCED; CYCLOPHOSPHAMIDE + NS
     Route: 041
  3. SODIUM CHLORIDE [Suspect]
     Active Substance: SODIUM CHLORIDE
     Indication: Medication dilution
     Dosage: DAY 1 TO DAY 4; ETOPOSIDE 90 MG + NS 360 ML
     Route: 041
     Dates: start: 20200831, end: 20200903
  4. SODIUM CHLORIDE [Suspect]
     Active Substance: SODIUM CHLORIDE
     Dosage: DAY 1 TO DAY 4; VINORELBINE TARTRATE 10 MG + NS 250 ML
     Route: 041
     Dates: start: 20200831, end: 20200903
  5. SODIUM CHLORIDE [Suspect]
     Active Substance: SODIUM CHLORIDE
     Dosage: DAY 5; CYCLOPHOSPHAMIDE 1.2 G + NS 500 ML
     Route: 041
     Dates: start: 20200904, end: 20200904
  6. SODIUM CHLORIDE [Suspect]
     Active Substance: SODIUM CHLORIDE
     Dosage: DOSE RE-INTRODUCED; CYCLOPHOSPHAMIDE + NS
     Route: 041
  7. SODIUM CHLORIDE [Suspect]
     Active Substance: SODIUM CHLORIDE
     Dosage: DOSE RE-INTRODUCED; ETOPOSIDE + NS
     Route: 041
  8. SODIUM CHLORIDE [Suspect]
     Active Substance: SODIUM CHLORIDE
     Dosage: DOSE RE-INTRODUCED; VINORELBINE TARTRATE + NS
     Route: 041
  9. DEXTROSE [Suspect]
     Active Substance: DEXTROSE
     Indication: Medication dilution
     Dosage: 5% GLUCOSE 540ML + RITUXIMAB 600MG (500 MG + 100 MG)
     Route: 041
     Dates: start: 20200830, end: 20200830
  10. DEXTROSE [Suspect]
     Active Substance: DEXTROSE
     Dosage: DAY 1 TO DAY 3; DOXORUBICIN HYDROCHLORIDE LIPOSOME 20 MG + 5% GLUCOSE 250 ML
     Route: 041
     Dates: start: 20200831, end: 20200902
  11. DEXTROSE [Suspect]
     Active Substance: DEXTROSE
     Dosage: DOSE RE-INTRODUCED; DOXORUBICIN HYDROCHLORIDE LIPOSOME + 5% GLUCOSE
     Route: 041
  12. DEXTROSE [Suspect]
     Active Substance: DEXTROSE
     Dosage: DOSE RE-INTRODUCED; RITUXIMAB + 5% GLUCOSE
     Route: 041
  13. DOXORUBICIN HYDROCHLORIDE [Suspect]
     Active Substance: DOXORUBICIN HYDROCHLORIDE
     Indication: Non-Hodgkin^s lymphoma
     Dosage: DAY 1 TO DAY 3; DOXORUBICIN HYDROCHLORIDE LIPOSOME 20 MG + 5% GLUCOSE 250 ML
     Route: 041
     Dates: start: 20200831, end: 20200902
  14. DOXORUBICIN HYDROCHLORIDE [Suspect]
     Active Substance: DOXORUBICIN HYDROCHLORIDE
     Dosage: DOSE RE-INTRODUCED; DOXORUBICIN HYDROCHLORIDE LIPOSOME + 5% GLUCOSE
     Route: 041
  15. ETOPOSIDE [Suspect]
     Active Substance: ETOPOSIDE
     Indication: Non-Hodgkin^s lymphoma
     Dosage: DAY 1 TO DAY 4; ETOPOSIDE 90 MG + NS 360 ML
     Route: 041
     Dates: start: 20200831, end: 20200903
  16. ETOPOSIDE [Suspect]
     Active Substance: ETOPOSIDE
     Dosage: DOSE RE-INTRODUCED; ETOPOSIDE + NS
     Route: 041
  17. VINORELBINE TARTRATE [Suspect]
     Active Substance: VINORELBINE TARTRATE
     Indication: Non-Hodgkin^s lymphoma
     Dosage: DAY 1 TO DAY 4; VINORELBINE TARTRATE 10 MG + NS 250 ML
     Route: 041
     Dates: start: 20200831, end: 20200903
  18. VINORELBINE TARTRATE [Suspect]
     Active Substance: VINORELBINE TARTRATE
     Dosage: DOSE RE-INTRODUCED; VINORELBINE TARTRATE + NS
     Route: 041
  19. MABTHERA [Suspect]
     Active Substance: RITUXIMAB
     Indication: Diffuse large B-cell lymphoma
     Dosage: DAY 0; 5% GLUCOSE 540ML + RITUXIMAB 600MG (500 MG + 100 MG)
     Route: 041
     Dates: start: 20200830, end: 20200830
  20. MABTHERA [Suspect]
     Active Substance: RITUXIMAB
     Dosage: DAY 0; 5% GLUCOSE 540ML + RITUXIMAB 600MG (500 MG + 100 MG)
     Route: 041
     Dates: start: 20200830, end: 20200830
  21. MABTHERA [Suspect]
     Active Substance: RITUXIMAB
     Dosage: DOSE RE-INTRODUCED
     Route: 041
  22. DEXAMETHASONE [Suspect]
     Active Substance: DEXAMETHASONE
     Indication: Non-Hodgkin^s lymphoma
     Dosage: DAY 1 TO DAY 5; TABLETS
     Route: 048
     Dates: start: 20200831, end: 20200904
  23. PROMETHAZINE [Concomitant]
     Active Substance: PROMETHAZINE HYDROCHLORIDE
     Indication: Allergy prophylaxis
     Route: 065
  24. ONDANSETRON [Concomitant]
     Active Substance: ONDANSETRON
     Indication: Prophylaxis of nausea and vomiting
     Route: 065
  25. ONDANSETRON [Concomitant]
     Active Substance: ONDANSETRON
     Indication: Prophylaxis against dehydration

REACTIONS (4)
  - Liver injury [Recovering/Resolving]
  - White blood cell count decreased [Recovering/Resolving]
  - Neutrophil count decreased [Recovering/Resolving]
  - Platelet disorder [Recovering/Resolving]

NARRATIVE: CASE EVENT DATE: 20200905
